FAERS Safety Report 7034328-6 (Version None)
Quarter: 2010Q4

REPORT INFORMATION
  Report Type: 
  Country: None (occurrence: None)
  Receive Date: 20101008
  Receipt Date: 20100923
  Transmission Date: 20110411
  Serious: Yes (Other)
  Sender: FDA-Public Use
  Company Number: PHHY2010US63753

PATIENT
  Sex: Male

DRUGS (5)
  1. DIOVAN [Suspect]
     Indication: RENAL DISORDER
     Dosage: 80 MG
  2. NASACORT [Suspect]
  3. FISH OIL [Suspect]
  4. FLOMAX [Concomitant]
  5. AVODART [Concomitant]

REACTIONS (7)
  - DEHYDRATION [None]
  - DRUG DOSE OMISSION [None]
  - FEELING ABNORMAL [None]
  - HYPOAESTHESIA [None]
  - LIP SWELLING [None]
  - OEDEMA PERIPHERAL [None]
  - SWOLLEN TONGUE [None]
